FAERS Safety Report 4632264-3 (Version None)
Quarter: 2005Q2

REPORT INFORMATION
  Report Type: 
  Country: None (occurrence: None)
  Receive Date: 20050411
  Receipt Date: 20050304
  Transmission Date: 20051028
  Serious: Yes (Disabling)
  Sender: FDA-Public Use
  Company Number: JP-ROCHE-399013

PATIENT
  Age: 6 Year
  Sex: Male

DRUGS (3)
  1. TAMIFLU [Suspect]
     Route: 048
     Dates: start: 20050228, end: 20050228
  2. POLARAMINE [Concomitant]
     Route: 048
  3. MUCODYNE [Concomitant]
     Route: 048

REACTIONS (2)
  - FEAR [None]
  - HALLUCINATION [None]
